FAERS Safety Report 14391595 (Version 1)
Quarter: 2018Q1

REPORT INFORMATION
  Report Type: Spontaneous
  Country: US (occurrence: US)
  Receive Date: 20180116
  Receipt Date: 20180116
  Transmission Date: 20180509
  Serious: No
  Sender: FDA-Public Use
  Company Number: US-HORIZON-PEN-0016-2018

PATIENT
  Age: 53 Year
  Sex: Female

DRUGS (1)
  1. PENNSAID [Suspect]
     Active Substance: DICLOFENAC SODIUM
     Indication: OSTEOARTHRITIS
     Dosage: 2 PUMPS BID
     Dates: start: 20180105, end: 20180107

REACTIONS (3)
  - Application site exfoliation [Unknown]
  - Application site pain [Unknown]
  - Off label use [Unknown]

NARRATIVE: CASE EVENT DATE: 20180105
